FAERS Safety Report 4263066-8 (Version None)
Quarter: 2004Q1

REPORT INFORMATION
  Report Type: 
  Country: None (occurrence: None)
  Receive Date: 20040105
  Receipt Date: 20031211
  Transmission Date: 20041129
  Serious: Yes (Death, Hospitalization)
  Sender: FDA-Public Use
  Company Number: PHBS2003JP14028

PATIENT
  Age: 55 Year
  Sex: Male

DRUGS (1)
  1. GLEEVEC [Suspect]
     Indication: GASTROINTESTINAL STROMAL TUMOUR
     Dosage: 400 MG/D
     Route: 048
     Dates: start: 20031001, end: 20031101

REACTIONS (2)
  - FACE OEDEMA [None]
  - TOXIC SKIN ERUPTION [None]
